FAERS Safety Report 9731737 (Version 3)
Quarter: 2013Q4

REPORT INFORMATION
  Report Type: Spontaneous
  Country: US (occurrence: US)
  Receive Date: 20131205
  Receipt Date: 20131224
  Transmission Date: 20140711
  Serious: Yes (Other)
  Sender: FDA-Public Use
  Company Number: US-ROCHE-1314560

PATIENT
  Age: 77 Year
  Sex: Male

DRUGS (3)
  1. LUCENTIS [Suspect]
     Indication: MACULAR DEGENERATION
     Route: 050
  2. ALLOPURINOL [Concomitant]
     Dosage: 1/2 PILL
     Route: 065
  3. FISH OIL [Concomitant]

REACTIONS (5)
  - Blindness [Recovering/Resolving]
  - Ocular discomfort [Unknown]
  - Vision blurred [Unknown]
  - Visual acuity reduced [Recovering/Resolving]
  - Eye irritation [Unknown]
